FAERS Safety Report 19185708 (Version 1)
Quarter: 2021Q2

REPORT INFORMATION
  Report Type: Other
  Country: US (occurrence: US)
  Receive Date: 20210427
  Receipt Date: 20210427
  Transmission Date: 20210717
  Serious: Yes (Hospitalization)
  Sender: FDA-Public Use
  Company Number: US-ROCHE-2812821

PATIENT
  Sex: Female

DRUGS (1)
  1. ACTEMRA [Suspect]
     Active Substance: TOCILIZUMAB
     Indication: RHEUMATOID ARTHRITIS
     Dosage: SHE RECEIVED THE MOST RECENT DOSE ON 23/JUL/2020
     Route: 042

REACTIONS (2)
  - Infection [Not Recovered/Not Resolved]
  - Tooth abscess [Not Recovered/Not Resolved]
